FAERS Safety Report 7116087-1 (Version None)
Quarter: 2010Q4

REPORT INFORMATION
  Report Type: 
  Country: None (occurrence: None)
  Receive Date: 20101122
  Receipt Date: 20101115
  Transmission Date: 20110411
  Serious: Yes (Other)
  Sender: FDA-Public Use
  Company Number: US-ROCHE-742174

PATIENT
  Sex: Male

DRUGS (4)
  1. PEGINTERFERON ALFA-2A [Suspect]
     Indication: HEPATITIS C
     Route: 065
     Dates: start: 20090605
  2. RIBAVIRIN [Suspect]
     Indication: HEPATITIS C
     Route: 065
     Dates: start: 20090605
  3. RIBAVIRIN [Suspect]
     Dosage: DOSE REDUCED
     Route: 065
  4. RIBAVIRIN [Suspect]
     Dosage: DISCONTINUED
     Route: 065

REACTIONS (4)
  - CATARACT OPERATION [None]
  - PRURITUS [None]
  - RASH [None]
  - RETINAL DETACHMENT [None]
